FAERS Safety Report 7678174-9 (Version None)
Quarter: 2011Q3

REPORT INFORMATION
  Report Type: 
  Country: None (occurrence: None)
  Receive Date: 20110811
  Receipt Date: 20110810
  Transmission Date: 20111222
  Serious: Yes (Hospitalization)
  Sender: FDA-Public Use
  Company Number: JP-PFIZER INC-2011144164

PATIENT
  Age: 40 Year
  Sex: Female
  Weight: 33 kg

DRUGS (1)
  1. ZITHROMAX [Suspect]
     Indication: PNEUMONIA
     Dosage: 500 MG, 1X/DAY
     Route: 048
     Dates: start: 20110614, end: 20110614

REACTIONS (4)
  - RASH [None]
  - PULMONARY CONGESTION [None]
  - PURPURA [None]
  - GENERALISED ERYTHEMA [None]
